FAERS Safety Report 6216153-9 (Version None)
Quarter: 2009Q2

REPORT INFORMATION
  Report Type: 
  Country: None (occurrence: None)
  Receive Date: 20090605
  Receipt Date: 20081126
  Transmission Date: 20091009
  Serious: No
  Sender: FDA-Public Use
  Company Number: US-TYCO HEALTHCARE/MALLINCKRODT-T200802029

PATIENT

DRUGS (4)
  1. ACETAMINOPHEN AND HYDROCODONE BITARTRATE [Suspect]
     Indication: PAIN
     Dosage: ONE TAB Q 6 HRS
     Route: 048
     Dates: start: 20081120, end: 20081124
  2. HYDROCODONE BITARTRATE [Suspect]
     Indication: PAIN
     Dosage: 7.5 MG Q 4 HRS PRN
     Route: 048
     Dates: start: 20080101, end: 20080101
  3. LISINOPRIL [Concomitant]
     Dosage: 10 MG, QD
     Route: 048
  4. ULTRAM [Concomitant]
     Indication: ANALGESIA
     Dosage: Q 6 HRS PRN
     Route: 048

REACTIONS (4)
  - DRUG EFFECT DECREASED [None]
  - DRUG INEFFECTIVE [None]
  - INCORRECT DOSE ADMINISTERED [None]
  - SOMNOLENCE [None]
